FAERS Safety Report 8125425-2 (Version None)
Quarter: 2012Q1

REPORT INFORMATION
  Report Type: 
  Country: None (occurrence: None)
  Receive Date: 20120209
  Receipt Date: 20120203
  Transmission Date: 20120608
  Serious: Yes (Hospitalization, Other)
  Sender: FDA-Public Use
  Company Number: FR-MERCK-1110FRA00009

PATIENT
  Age: 68 Year
  Sex: Male

DRUGS (4)
  1. PRIMAXIN [Suspect]
     Indication: LIVER ABSCESS
     Route: 042
     Dates: start: 20110801, end: 20110910
  2. FLUCONAZOLE [Suspect]
     Indication: PSEUDOMONAS INFECTION
     Route: 048
     Dates: start: 20110801, end: 20110910
  3. PRIMAXIN [Suspect]
     Indication: PSEUDOMONAS INFECTION
     Route: 042
     Dates: start: 20110801, end: 20110910
  4. FLUCONAZOLE [Suspect]
     Indication: LIVER ABSCESS
     Route: 048
     Dates: start: 20110801, end: 20110910

REACTIONS (2)
  - CHOLESTASIS [None]
  - CONVULSION [None]
